FAERS Safety Report 5743584-3 (Version None)
Quarter: 2008Q2

REPORT INFORMATION
  Report Type: 
  Country: None (occurrence: None)
  Receive Date: 20080516
  Receipt Date: 20080507
  Transmission Date: 20081010
  Serious: Yes (Other)
  Sender: FDA-Public Use
  Company Number: 2008AL004373

PATIENT
  Age: 28 Year
  Sex: Female

DRUGS (1)
  1. CITALOPRAM HYDROBROMIDE [Suspect]
     Indication: DRUG USE FOR UNKNOWN INDICATION
     Dosage: 20 MG, PO
     Route: 048
     Dates: start: 20070323, end: 20070328

REACTIONS (3)
  - COAGULATION TEST ABNORMAL [None]
  - INCREASED TENDENCY TO BRUISE [None]
  - RASH PRURITIC [None]
